FAERS Safety Report 7340096-0 (Version None)
Quarter: 2011Q1

REPORT INFORMATION
  Report Type: 
  Country: None (occurrence: None)
  Receive Date: 20110309
  Receipt Date: 20110222
  Transmission Date: 20110831
  Serious: Yes (Other)
  Sender: FDA-Public Use
  Company Number: DE-JNJFOC-20110205716

PATIENT
  Sex: Male
  Weight: 53 kg

DRUGS (9)
  1. PALEXIA RETARD [Suspect]
     Indication: PAIN
     Route: 048
  2. DILATREND [Concomitant]
  3. PALEXIA RETARD [Suspect]
     Route: 048
  4. PANKREOZYM [Concomitant]
  5. TRANSTEC PRO [Suspect]
     Indication: PRODUCT USED FOR UNKNOWN INDICATION
     Dosage: 52.5 MCG/HR OR 70 MCG/HR
     Route: 062
  6. ASPIRIN [Concomitant]
  7. TEMGESIC [Concomitant]
     Route: 060
  8. SIMVASTATIN [Concomitant]
  9. AMITRIPTYLINE [Concomitant]
     Indication: SLEEP DISORDER

REACTIONS (10)
  - CONFUSIONAL STATE [None]
  - HALLUCINATION [None]
  - DRUG INEFFECTIVE [None]
  - DISORIENTATION [None]
  - TREMOR [None]
  - HYPERHIDROSIS [None]
  - MUSCLE SPASMS [None]
  - MUSCLE TWITCHING [None]
  - DYSKINESIA [None]
  - DYSPHONIA [None]
